FAERS Safety Report 5149965-3 (Version None)
Quarter: 2006Q4

REPORT INFORMATION
  Report Type: 
  Country: None (occurrence: None)
  Receive Date: 20061108
  Receipt Date: 20061026
  Transmission Date: 20070319
  Serious: Yes (Other)
  Sender: FDA-Public Use
  Company Number: 2006131899

PATIENT
  Age: 72 Year
  Sex: Female

DRUGS (4)
  1. NORVASC [Suspect]
     Indication: HYPERTENSION
     Dates: start: 20061019
  2. WELLBUTRIN [Concomitant]
  3. EFFEXOR [Concomitant]
  4. SEROQUEL [Concomitant]

REACTIONS (2)
  - DELUSION [None]
  - HALLUCINATION [None]
